FAERS Safety Report 10444631 (Version 1)
Quarter: 2014Q3

REPORT INFORMATION
  Report Type: Spontaneous
  Country: JP (occurrence: JP)
  Receive Date: 20140910
  Receipt Date: 20140910
  Transmission Date: 20150326
  Serious: No
  Sender: FDA-Public Use
  Company Number: PHHY2013JP162287

PATIENT
  Sex: Male

DRUGS (3)
  1. TASIGNA [Suspect]
     Active Substance: NILOTINIB
     Dosage: UNK UKN, UNK
     Dates: start: 20100916
  2. DASATINIB [Suspect]
     Active Substance: DASATINIB
     Dosage: UNK UKN, UNK
  3. URSO [Concomitant]
     Active Substance: URSODIOL
     Dosage: UNK UKN, UNK

REACTIONS (5)
  - Liver function test abnormal [Unknown]
  - Rash [Unknown]
  - Dyspnoea [Unknown]
  - Cough [Recovering/Resolving]
  - Pleural effusion [Unknown]

NARRATIVE: CASE EVENT DATE: 20100916
